FAERS Safety Report 6772290-1 (Version None)
Quarter: 2010Q2

REPORT INFORMATION
  Report Type: 
  Country: None (occurrence: None)
  Receive Date: 20100616
  Receipt Date: 20100322
  Transmission Date: 20101027
  Serious: No
  Sender: FDA-Public Use
  Company Number: US-ASTRAZENECA-2010SE12940

PATIENT
  Age: 23537 Day
  Sex: Female

DRUGS (2)
  1. PULMICORT FLEXHALER [Suspect]
     Route: 055
  2. RHINOCORT [Suspect]
     Route: 045

REACTIONS (1)
  - ARTHROSCOPY [None]
